FAERS Safety Report 10416373 (Version 1)
Quarter: 2014Q3

REPORT INFORMATION
  Report Type: Spontaneous
  Country: US (occurrence: None)
  Receive Date: 20140827
  Receipt Date: 20140827
  Transmission Date: 20150326
  Serious: Yes (Other)
  Sender: FDA-Public Use
  Company Number: None

PATIENT
  Age: 24 Year
  Sex: Female
  Weight: 104.33 kg

DRUGS (1)
  1. NEXPLANON [Suspect]
     Active Substance: ETONOGESTREL
     Indication: CONTRACEPTIVE IMPLANT
     Dosage: IMPLANT, CONSTANT, GIVEN INTO/UNDER THE SKIN
     Dates: start: 20120503

REACTIONS (9)
  - Weight increased [None]
  - Anxiety [None]
  - Muscle disorder [None]
  - Smear cervix abnormal [None]
  - Amenorrhoea [None]
  - Depression [None]
  - Precancerous cells present [None]
  - Migraine [None]
  - Menorrhagia [None]

NARRATIVE: CASE EVENT DATE: 20140707
